FAERS Safety Report 5015325-9 (Version None)
Quarter: 2006Q2

REPORT INFORMATION
  Report Type: 
  Country: None (occurrence: None)
  Receive Date: 20060601
  Receipt Date: 20060119
  Transmission Date: 20061013
  Serious: Yes (Hospitalization)
  Sender: FDA-Public Use
  Company Number: US-SANOFI-SYNTHELABO-A03200600364

PATIENT
  Sex: Male

DRUGS (5)
  1. AMBIEN [Suspect]
     Indication: INSOMNIA
     Dosage: TEN TO TWENTY TABLETS DAILY
     Route: 048
     Dates: start: 19980101
  2. AMBIEN [Suspect]
     Dosage: 10 MG HS + A SECOND TABLET PRN
     Route: 048
  3. ANTIHYPERTENSIVES [Concomitant]
     Dosage: UNK
     Route: 048
  4. NEXIUM [Concomitant]
     Dosage: UNK
     Route: 048
  5. AMITRIPTYLINE HCL [Concomitant]
     Dosage: UNK
     Route: 048

REACTIONS (11)
  - AMNESIA [None]
  - CEREBROVASCULAR ACCIDENT [None]
  - DRUG ABUSER [None]
  - DRUG SCREEN POSITIVE [None]
  - FEELING ABNORMAL [None]
  - GRAND MAL CONVULSION [None]
  - LOSS OF CONSCIOUSNESS [None]
  - MENTAL IMPAIRMENT [None]
  - OVERDOSE [None]
  - ROAD TRAFFIC ACCIDENT [None]
  - SKIN TURGOR DECREASED [None]
